FAERS Safety Report 21268955 (Version 1)
Quarter: 2022Q3

REPORT INFORMATION
  Report Type: Spontaneous
  Country: US (occurrence: US)
  Receive Date: 20220830
  Receipt Date: 20220830
  Transmission Date: 20221027
  Serious: Yes (Other)
  Sender: FDA-Public Use
  Company Number: US-SANOFI-01245888

PATIENT
  Age: 64 Year
  Sex: Female
  Weight: 88 kg

DRUGS (6)
  1. THYMOGLOBULIN [Suspect]
     Active Substance: LAPINE T-LYMPHOCYTE IMMUNE GLOBULIN
     Indication: Immunosuppression
     Dosage: 75 MG, Q6H
     Dates: start: 20220715
  2. DIPHENHYDRAMINE [Concomitant]
     Active Substance: DIPHENHYDRAMINE
     Indication: Prophylaxis
     Dosage: 25 MG
     Route: 042
  3. ACETAMINOPHEN [Concomitant]
     Active Substance: ACETAMINOPHEN
     Indication: Prophylaxis
     Dosage: 1000 MG, Q8H
  4. METHYLPREDNISOLONE [Concomitant]
     Active Substance: METHYLPREDNISOLONE
     Indication: Prophylaxis
     Dosage: 40 MG, QD
     Route: 042
  5. TACROLIMUS [Concomitant]
     Active Substance: TACROLIMUS
  6. BASILIXIMAB [Concomitant]
     Active Substance: BASILIXIMAB

REACTIONS (5)
  - Renal tubular necrosis [Unknown]
  - Serum sickness [Unknown]
  - Hypertension [Unknown]
  - Pyrexia [Unknown]
  - Hypotension [Unknown]
